FAERS Safety Report 16325273 (Version 2)
Quarter: 2020Q3

REPORT INFORMATION
  Report Type: Spontaneous
  Country: US (occurrence: US)
  Receive Date: 20190517
  Receipt Date: 20200923
  Transmission Date: 20201102
  Serious: Yes (Other)
  Sender: FDA-Public Use
  Company Number: US-GILEAD-2019-0407765

PATIENT
  Age: 62 Year
  Sex: Male
  Weight: 83.45 kg

DRUGS (23)
  1. KALETRA [Concomitant]
     Active Substance: LOPINAVIR\RITONAVIR
  2. CALCIUM [Concomitant]
     Active Substance: CALCIUM
  3. DOCUSATE [Concomitant]
     Active Substance: DOCUSATE
  4. LISINOPRIL. [Concomitant]
     Active Substance: LISINOPRIL
  5. SILDENAFIL. [Concomitant]
     Active Substance: SILDENAFIL
  6. TRUVADA [Suspect]
     Active Substance: EMTRICITABINE\TENOFOVIR DISOPROXIL FUMARATE
     Dosage: UNK
     Route: 048
     Dates: start: 20130918
  7. CLOPIDOGREL [Concomitant]
     Active Substance: CLOPIDOGREL BISULFATE
  8. ALBUTEROL HFA [Concomitant]
     Active Substance: ALBUTEROL SULFATE
  9. NITROGLYCERIN. [Concomitant]
     Active Substance: NITROGLYCERIN
  10. SALSALATE. [Concomitant]
     Active Substance: SALSALATE
  11. DICLOFENAC [Concomitant]
     Active Substance: DICLOFENAC
  12. TRUVADA [Suspect]
     Active Substance: EMTRICITABINE\TENOFOVIR DISOPROXIL FUMARATE
     Indication: HIV INFECTION
     Dosage: UNK
     Route: 048
     Dates: start: 2001
  13. POLYETHYLENE GLYCOL 3350. [Concomitant]
     Active Substance: POLYETHYLENE GLYCOL 3350
  14. PRAVASTATIN. [Concomitant]
     Active Substance: PRAVASTATIN
  15. QUETIAPINE FUMARATE. [Concomitant]
     Active Substance: QUETIAPINE FUMARATE
  16. VIREAD [Suspect]
     Active Substance: TENOFOVIR DISOPROXIL FUMARATE
     Indication: HIV INFECTION
     Dosage: UNK
     Route: 048
     Dates: start: 2001
  17. METHYLPREDNISOLONE. [Concomitant]
     Active Substance: METHYLPREDNISOLONE
  18. FINASTERIDE. [Concomitant]
     Active Substance: FINASTERIDE
  19. ASPIRIN [ACETYLSALICYLIC ACID] [Concomitant]
     Active Substance: ASPIRIN
  20. TAMULOSIN [Concomitant]
     Active Substance: TAMSULOSIN
  21. RALTEGRAVIR. [Concomitant]
     Active Substance: RALTEGRAVIR
  22. GABAPENTIN. [Concomitant]
     Active Substance: GABAPENTIN
  23. MOMETASONE [Concomitant]
     Active Substance: MOMETASONE

REACTIONS (12)
  - Pain [Not Recovered/Not Resolved]
  - Chronic kidney disease [Not Recovered/Not Resolved]
  - Economic problem [Not Recovered/Not Resolved]
  - Anxiety [Not Recovered/Not Resolved]
  - Emotional distress [Not Recovered/Not Resolved]
  - Osteoporosis [Not Recovered/Not Resolved]
  - Anhedonia [Not Recovered/Not Resolved]
  - Lower limb fracture [Unknown]
  - Rib fracture [Not Recovered/Not Resolved]
  - Arthralgia [Unknown]
  - Back pain [Unknown]
  - Pain in extremity [Unknown]

NARRATIVE: CASE EVENT DATE: 20141212
